FAERS Safety Report 21343841 (Version 1)
Quarter: 2022Q3

REPORT INFORMATION
  Report Type: Spontaneous
  Country: US (occurrence: None)
  Receive Date: 20220916
  Receipt Date: 20220916
  Transmission Date: 20221026
  Serious: No
  Sender: FDA-Public Use
  Company Number: None

PATIENT
  Age: 66 Year
  Sex: Male

DRUGS (2)
  1. PRIFTIN [Suspect]
     Active Substance: RIFAPENTINE
  2. ISONIAZID [Suspect]
     Active Substance: ISONIAZID

REACTIONS (2)
  - Exposure to communicable disease [None]
  - Urinary retention [None]

NARRATIVE: CASE EVENT DATE: 20220916
